FAERS Safety Report 25040492 (Version 2)
Quarter: 2025Q1

REPORT INFORMATION
  Report Type: Spontaneous
  Country: SI (occurrence: SI)
  Receive Date: 20250305
  Receipt Date: 20250306
  Transmission Date: 20250409
  Serious: Yes (Other)
  Sender: ALEXION PHARMACEUTICALS
  Company Number: SI-ASTRAZENECA-202503EEA001128SI

PATIENT
  Age: 69 Year

DRUGS (2)
  1. IMFINZI [Suspect]
     Active Substance: DURVALUMAB
     Indication: Cholangiocarcinoma
     Route: 065
  2. GEMCITABINE [Concomitant]
     Active Substance: GEMCITABINE
     Route: 065

REACTIONS (3)
  - Malignant neoplasm progression [Unknown]
  - Neutropenia [Unknown]
  - Bone disorder [Unknown]
